FAERS Safety Report 5329450-6 (Version None)
Quarter: 2007Q2

REPORT INFORMATION
  Report Type: 
  Country: None (occurrence: None)
  Receive Date: 20070221
  Receipt Date: 20060317
  Transmission Date: 20071010
  Serious: Yes (Hospitalization)
  Sender: FDA-Public Use
  Company Number: BDI-007885

PATIENT
  Age: 34 Year
  Sex: Female

DRUGS (2)
  1. ISOVUE-300 [Suspect]
     Indication: COMPUTERISED TOMOGRAM
     Dosage: 100 ML ONCE IV
     Route: 042
     Dates: start: 20060120, end: 20060120
  2. ISOVUE-300 [Suspect]
     Indication: NEPHROLITHIASIS
     Dosage: 100 ML ONCE IV
     Route: 042
     Dates: start: 20060120, end: 20060120

REACTIONS (8)
  - BURNING SENSATION [None]
  - DISCOMFORT [None]
  - DIZZINESS [None]
  - ERYTHEMA [None]
  - FOAMING AT MOUTH [None]
  - SOMNOLENCE [None]
  - SWELLING FACE [None]
  - VOMITING [None]
